FAERS Safety Report 8450093-X (Version None)
Quarter: 2012Q2

REPORT INFORMATION
  Report Type: 
  Country: None (occurrence: None)
  Receive Date: 20120614
  Receipt Date: 20120614
  Transmission Date: 20120825
  Serious: Yes (Other)
  Sender: FDA-Public Use
  Company Number: None

PATIENT
  Age: 45 Year
  Sex: Female
  Weight: 91.6266 kg

DRUGS (2)
  1. LEXAPRO [Suspect]
     Indication: ANXIETY
     Dosage: ONE PO QD
     Route: 048
     Dates: start: 20111222, end: 20120319
  2. LEXAPRO [Suspect]
     Indication: DEPRESSION
     Dosage: ONE PO QD
     Route: 048
     Dates: start: 20111222, end: 20120319

REACTIONS (1)
  - DRUG EFFECT DECREASED [None]
